FAERS Safety Report 5030560-1 (Version None)
Quarter: 2006Q2

REPORT INFORMATION
  Report Type: 
  Country: None (occurrence: None)
  Receive Date: 20060615
  Receipt Date: 20060607
  Transmission Date: 20061013
  Serious: Yes (Life-Threatening, Hospitalization, Other)
  Sender: FDA-Public Use
  Company Number: 2006073057

PATIENT
  Age: 78 Year
  Sex: Female
  Weight: 72.5755 kg

DRUGS (1)
  1. NORVASC [Suspect]
     Indication: CARDIAC DISORDER
     Dosage: 20 MG (10 MG, 2 IN 1 D), ORAL
     Route: 048
     Dates: start: 20050101

REACTIONS (4)
  - ACCIDENT [None]
  - ANKLE FRACTURE [None]
  - FALL [None]
  - MYOCARDIAL INFARCTION [None]
